FAERS Safety Report 13221880 (Version 1)
Quarter: 2017Q1

REPORT INFORMATION
  Report Type: Report from Study
  Country: US (occurrence: MX)
  Receive Date: 20170211
  Receipt Date: 20170211
  Transmission Date: 20170428
  Serious: Yes (Other)
  Sender: FDA-Public Use
  Company Number: US-SUNOVION-2017SUN000587

PATIENT
  Sex: Male

DRUGS (4)
  1. INDACATEROL AND GLYCOPYRROLATE [Suspect]
     Active Substance: GLYCOPYRROLATE\INDACATEROL MALEATE
     Indication: CHRONIC OBSTRUCTIVE PULMONARY DISEASE
     Dosage: 1 DF, QD
     Route: 065
     Dates: start: 20161117
  2. SPIRIVA [Concomitant]
     Active Substance: TIOTROPIUM BROMIDE MONOHYDRATE
  3. SALBUTAMOL [Concomitant]
     Active Substance: ALBUTEROL
  4. MIFLONIDE [Suspect]
     Active Substance: BUDESONIDE
     Indication: CHRONIC OBSTRUCTIVE PULMONARY DISEASE
     Dosage: 2 DF, QD
     Route: 065
     Dates: start: 20161117

REACTIONS (11)
  - Depression [Unknown]
  - Muscle spasms [Unknown]
  - Tobacco abuse [Unknown]
  - Pulmonary oedema [Unknown]
  - Pain in extremity [Unknown]
  - Frustration tolerance decreased [Unknown]
  - Anger [Unknown]
  - Alcoholism [Unknown]
  - Weight decreased [Unknown]
  - Peripheral swelling [Unknown]
  - Anxiety [Unknown]
